FAERS Safety Report 8558845-2 (Version None)
Quarter: 2012Q3

REPORT INFORMATION
  Report Type: 
  Country: None (occurrence: None)
  Receive Date: 20120801
  Receipt Date: 20110105
  Transmission Date: 20120928
  Serious: Yes (Other)
  Sender: FDA-Public Use
  Company Number: US-BAYER-2011-002033

PATIENT
  Age: 78 Year
  Sex: Male

DRUGS (4)
  1. CIPRO [Suspect]
     Indication: PROSTATE INFECTION
  2. SULFAMETHOXAZOLE [Concomitant]
  3. TRIMETHOPRIM [Concomitant]
  4. FLOMAX [Concomitant]
     Indication: DYSURIA
     Route: 048

REACTIONS (5)
  - ANGINA PECTORIS [None]
  - ABDOMINAL DISCOMFORT [None]
  - DIARRHOEA [None]
  - BLOOD PRESSURE DECREASED [None]
  - FEELING ABNORMAL [None]
